FAERS Safety Report 9341802 (Version 2)
Quarter: 2013Q3

REPORT INFORMATION
  Report Type: Spontaneous
  Country: US (occurrence: US)
  Receive Date: 20130611
  Receipt Date: 20130703
  Transmission Date: 20140515
  Serious: Yes (Death)
  Sender: FDA-Public Use
  Company Number: US-FRI-1000045666

PATIENT
  Age: 31 Year
  Sex: Male
  Weight: 92 kg

DRUGS (5)
  1. VIIBRYD [Suspect]
     Indication: MAJOR DEPRESSION
     Dosage: 10 MG
     Route: 048
     Dates: start: 20130409, end: 20130415
  2. VIIBRYD [Suspect]
     Dosage: 20 MG
     Route: 048
     Dates: start: 20130416, end: 20130422
  3. VIIBRYD [Suspect]
     Dosage: 40 MG
     Route: 048
     Dates: start: 20130423
  4. RITALIN [Concomitant]
  5. SOMA [Concomitant]

REACTIONS (2)
  - Completed suicide [Fatal]
  - Overdose [Fatal]
